FAERS Safety Report 5409767-7 (Version None)
Quarter: 2007Q3

REPORT INFORMATION
  Report Type: 
  Country: None (occurrence: None)
  Receive Date: 20070807
  Receipt Date: 20070726
  Transmission Date: 20080115
  Serious: Yes (Other)
  Sender: FDA-Public Use
  Company Number: CHPA2007US08169

PATIENT
  Sex: Female

DRUGS (3)
  1. NICOTINE [Suspect]
     Indication: SMOKING CESSATION THERAPY
     Dosage: 14 MG, ONCE/SINGLE, TRANSDERMAL; 21 MG, ONCE/SINGLE, TRANSDERMAL; TRANSDERMAL
     Route: 062
     Dates: start: 20070723, end: 20070723
  2. NICOTINE [Suspect]
     Indication: SMOKING CESSATION THERAPY
     Dosage: 14 MG, ONCE/SINGLE, TRANSDERMAL; 21 MG, ONCE/SINGLE, TRANSDERMAL; TRANSDERMAL
     Route: 062
     Dates: start: 20070724, end: 20070724
  3. NICOTINE [Suspect]
     Indication: SMOKING CESSATION THERAPY
     Dosage: 14 MG, ONCE/SINGLE, TRANSDERMAL; 21 MG, ONCE/SINGLE, TRANSDERMAL; TRANSDERMAL
     Route: 062
     Dates: start: 20070725

REACTIONS (6)
  - ANXIETY [None]
  - CONFUSIONAL STATE [None]
  - HEADACHE [None]
  - INAPPROPRIATE SCHEDULE OF DRUG ADMINISTRATION [None]
  - NAUSEA [None]
  - TREATMENT NONCOMPLIANCE [None]
